FAERS Safety Report 16599301 (Version 2)
Quarter: 2019Q4

REPORT INFORMATION
  Report Type: Report from Study
  Country: BR (occurrence: BR)
  Receive Date: 20190719
  Receipt Date: 20191020
  Transmission Date: 20200122
  Serious: Yes (Other)
  Sender: FDA-Public Use
  Company Number: PHHY2019BR166288

PATIENT
  Age: 58 Year
  Sex: Male
  Weight: 64 kg

DRUGS (2)
  1. COSENTYX [Suspect]
     Active Substance: SECUKINUMAB
     Indication: SPONDYLITIS
     Dosage: UNK
     Route: 065
     Dates: start: 201905
  2. COSENTYX [Suspect]
     Active Substance: SECUKINUMAB
     Dosage: UNK
     Route: 065

REACTIONS (11)
  - Hypertension [Not Recovered/Not Resolved]
  - Product use in unapproved indication [Unknown]
  - Memory impairment [Unknown]
  - Arthritis [Unknown]
  - Neuropathy peripheral [Unknown]
  - Peripheral swelling [Not Recovered/Not Resolved]
  - Neck pain [Recovered/Resolved]
  - Back pain [Unknown]
  - Torticollis [Unknown]
  - Arthralgia [Not Recovered/Not Resolved]
  - Musculoskeletal stiffness [Unknown]

NARRATIVE: CASE EVENT DATE: 20190611
